FAERS Safety Report 5400170-2 (Version None)
Quarter: 2007Q3

REPORT INFORMATION
  Report Type: 
  Country: None (occurrence: None)
  Receive Date: 20070730
  Receipt Date: 20070718
  Transmission Date: 20080115
  Serious: Yes (Other)
  Sender: FDA-Public Use
  Company Number: US-AMGEN-STX234831

PATIENT
  Age: 37 Year
  Sex: Male

DRUGS (4)
  1. ENBREL [Suspect]
     Indication: PSORIASIS
     Route: 058
     Dates: start: 20040801
  2. DOVONEX [Concomitant]
     Route: 061
  3. BETAMETHASONE DIPROPIONATE [Concomitant]
  4. CALCIPOTRIENE [Concomitant]

REACTIONS (1)
  - GYNAECOMASTIA [None]
